FAERS Safety Report 8056998-6 (Version None)
Quarter: 2012Q1

REPORT INFORMATION
  Report Type: 
  Country: None (occurrence: None)
  Receive Date: 20120119
  Receipt Date: 20120113
  Transmission Date: 20120608
  Serious: Yes (Other)
  Sender: FDA-Public Use
  Company Number: US-ACTELION-A-US2011-58114

PATIENT

DRUGS (11)
  1. TRAZODONE HCL [Concomitant]
  2. CLONOPIN [Concomitant]
  3. TOPROL-XL [Concomitant]
  4. HYDROXYCHLOROQUINE SULFATE [Concomitant]
  5. VENTAVIS [Suspect]
     Indication: PULMONARY ARTERIAL HYPERTENSION
     Dosage: X6/DAY
     Route: 055
     Dates: start: 20111012
  6. SYNTHROID [Concomitant]
  7. ZYPREXA [Concomitant]
  8. GEODON [Concomitant]
  9. TRICOR [Concomitant]
  10. TRILEPTAL [Concomitant]
  11. TRACLEER [Suspect]
     Indication: PULMONARY ARTERIAL HYPERTENSION
     Dosage: 125 MG, BID
     Route: 048
     Dates: start: 20110401

REACTIONS (5)
  - BRONCHITIS [None]
  - COUGH [None]
  - THROAT IRRITATION [None]
  - NASOPHARYNGITIS [None]
  - NASAL CONGESTION [None]
